FAERS Safety Report 8129434-9 (Version None)
Quarter: 2012Q1

REPORT INFORMATION
  Report Type: 
  Country: None (occurrence: None)
  Receive Date: 20120210
  Receipt Date: 20120130
  Transmission Date: 20120608
  Serious: Yes (Other)
  Sender: FDA-Public Use
  Company Number: GB-BRISTOL-MYERS SQUIBB COMPANY-16393803

PATIENT
  Age: 65 Year
  Sex: Male

DRUGS (3)
  1. ETOPOSIDE [Suspect]
     Indication: TESTICULAR GERM CELL CANCER
  2. CARBOPLATIN [Suspect]
     Indication: TESTICULAR GERM CELL CANCER
  3. CISPLATIN [Suspect]
     Indication: TESTICULAR GERM CELL CANCER

REACTIONS (3)
  - FEBRILE NEUTROPENIA [None]
  - DEEP VEIN THROMBOSIS [None]
  - BLOOD CREATININE INCREASED [None]
